FAERS Safety Report 7060380-8 (Version None)
Quarter: 2010Q4

REPORT INFORMATION
  Report Type: 
  Country: None (occurrence: None)
  Receive Date: 20101025
  Receipt Date: 20101014
  Transmission Date: 20110411
  Serious: Yes (Other)
  Sender: FDA-Public Use
  Company Number: US-NOVEN-10US001393

PATIENT
  Sex: Female

DRUGS (2)
  1. PEXEVA [Suspect]
     Indication: DEPRESSION
     Dosage: 40 MG, QD
     Route: 048
  2. UNKNOWN [Concomitant]

REACTIONS (4)
  - DEATH OF RELATIVE [None]
  - FLAT AFFECT [None]
  - HYPERHIDROSIS [None]
  - LUNG NEOPLASM MALIGNANT [None]
